FAERS Safety Report 12657062 (Version 1)
Quarter: 2016Q3

REPORT INFORMATION
  Report Type: Spontaneous
  Country: US (occurrence: US)
  Receive Date: 20160816
  Receipt Date: 20160816
  Transmission Date: 20161109
  Serious: No
  Sender: FDA-Public Use
  Company Number: US-PERRIGO-16US016885

PATIENT
  Sex: Male
  Weight: 89.8 kg

DRUGS (3)
  1. LORATADINE. [Suspect]
     Active Substance: LORATADINE
     Indication: SEASONAL ALLERGY
     Dosage: 10 TO 20 MG, QD, PRN
     Route: 048
     Dates: start: 2016
  2. LORATADINE. [Suspect]
     Active Substance: LORATADINE
     Indication: MYCOTIC ALLERGY
     Dosage: 10 TO 20 MG, QD, PRN
     Route: 048
     Dates: start: 2009, end: 2016
  3. EXPECTORANTS [Concomitant]
     Indication: PRODUCTIVE COUGH
     Dosage: UNK
     Route: 065
     Dates: start: 201603

REACTIONS (2)
  - Incorrect dose administered [Unknown]
  - Drug effect decreased [Unknown]

NARRATIVE: CASE EVENT DATE: 2009
